FAERS Safety Report 8135976-2 (Version None)
Quarter: 2012Q1

REPORT INFORMATION
  Report Type: 
  Country: None (occurrence: None)
  Receive Date: 20120214
  Receipt Date: 20120130
  Transmission Date: 20120608
  Serious: Yes (Hospitalization, Other)
  Sender: FDA-Public Use
  Company Number: DE-PFIZER INC-2012021189

PATIENT
  Sex: Male

DRUGS (10)
  1. ESCITALOPRAM [Suspect]
     Dosage: 30 MG, 1X/DAY
     Route: 064
     Dates: start: 20101126, end: 20110104
  2. OXYCODONE HYDROCHLORIDE [Suspect]
     Indication: PAIN
     Dosage: 70 MG/D (30-10-30)
     Route: 064
     Dates: start: 20101126
  3. MORPHINE SULFATE [Suspect]
     Indication: PAIN
     Dosage: 40 MG/D 3 TO 4 TIMES PER WEEK, 2X 20MG/D MAX, FROM GW 0 TO 5.4
     Route: 064
     Dates: start: 20101126, end: 20110104
  4. AMITRIPTYLINE HCL [Suspect]
     Indication: DEPRESSION
     Dosage: 150 MG/D FROM GW 0 TO 5.4
     Route: 064
     Dates: start: 20101126, end: 20110104
  5. CYMBALTA [Suspect]
     Dosage: 30 MG, 2X/DAY FROM GW 0 TO 5.4
     Route: 064
     Dates: start: 20101126, end: 20110104
  6. OXYCODONE HYDROCHLORIDE [Suspect]
     Dosage: 10 MG/D
     Route: 064
  7. DIMENHYDRINATE [Suspect]
     Indication: VOMITING IN PREGNANCY
     Dosage: 50 MG, 3X/DAY, FROM GW 6 TO 15.4
     Route: 064
     Dates: start: 20110107, end: 20110315
  8. FEMIBION [Suspect]
     Indication: PROPHYLAXIS OF NEURAL TUBE DEFECT
     Dosage: 0.4 MG, 1X/DAY FROM GW 5.4 TO 12
     Route: 064
  9. SERTRALINE HYDROCHLORIDE [Suspect]
     Indication: DEPRESSION
     Dosage: 50 MG, 1X/DAY, FROM GW 6 TO 38.3
     Route: 064
     Dates: start: 20110107
  10. TRUXAL [Suspect]
     Dosage: 50 MG, 1X/DAY FROM GW 0 TO 5.4
     Route: 064
     Dates: start: 20101126, end: 20110104

REACTIONS (8)
  - TREMOR [None]
  - BODY TEMPERATURE INCREASED [None]
  - MATERNAL EXPOSURE TIMING UNSPECIFIED [None]
  - AGITATION [None]
  - NEONATAL RESPIRATORY DISTRESS SYNDROME [None]
  - DRUG WITHDRAWAL SYNDROME NEONATAL [None]
  - HYPERHIDROSIS [None]
  - TACHYCARDIA [None]
